FAERS Safety Report 7131339-7 (Version None)
Quarter: 2010Q4

REPORT INFORMATION
  Report Type: 
  Country: None (occurrence: None)
  Receive Date: 20101124
  Receipt Date: 20101124
  Transmission Date: 20110411
  Serious: No
  Sender: FDA-Public Use
  Company Number: None

PATIENT
  Age: 47 Year
  Sex: Male

DRUGS (2)
  1. SUTENT [Suspect]
     Indication: RENAL CELL CARCINOMA
     Dosage: 50MG DAILY PO
     Route: 048
  2. WARFARIN [Concomitant]

REACTIONS (2)
  - HAEMORRHAGE [None]
  - NAIL DISCOLOURATION [None]
